FAERS Safety Report 20570715 (Version 1)
Quarter: 2022Q1

REPORT INFORMATION
  Report Type: Spontaneous
  Country: US (occurrence: US)
  Receive Date: 20220309
  Receipt Date: 20220309
  Transmission Date: 20220423
  Serious: No
  Sender: FDA-Public Use
  Company Number: US-JNJFOC-20220254149

PATIENT
  Sex: Female

DRUGS (2)
  1. TYLENOL 8 HR ARTHRITIS PAIN [Suspect]
     Active Substance: ACETAMINOPHEN
     Indication: Rheumatic disorder
     Dosage: 2 TYLENOL EVERY 4 HOURS
     Route: 065
     Dates: start: 20220222
  2. TYLENOL [Concomitant]
     Active Substance: ACETAMINOPHEN
     Indication: Rheumatic disorder
     Route: 065
     Dates: start: 20220221

REACTIONS (1)
  - Inappropriate schedule of product administration [Unknown]

NARRATIVE: CASE EVENT DATE: 20220222
